FAERS Safety Report 13866296 (Version 2)
Quarter: 2018Q2

REPORT INFORMATION
  Report Type: Spontaneous
  Country: US (occurrence: US)
  Receive Date: 20170814
  Receipt Date: 20180608
  Transmission Date: 20180711
  Serious: No
  Sender: FDA-Public Use
  Company Number: US-ROCHE-1887603

PATIENT
  Sex: Female

DRUGS (1)
  1. ACTEMRA [Suspect]
     Active Substance: TOCILIZUMAB
     Indication: RHEUMATOID ARTHRITIS
     Dosage: SAME DOSE ON 15/DEC/2016
     Route: 058
     Dates: start: 20161123

REACTIONS (4)
  - Injection site reaction [Unknown]
  - Pruritus [Unknown]
  - Sinus congestion [Unknown]
  - Headache [Unknown]
